FAERS Safety Report 20158000 (Version 3)
Quarter: 2022Q2

REPORT INFORMATION
  Report Type: Spontaneous
  Country: US (occurrence: US)
  Receive Date: 20211207
  Receipt Date: 20220620
  Transmission Date: 20220720
  Serious: Yes (Hospitalization, Other)
  Sender: FDA-Public Use
  Company Number: US-SA-SAC20211130000541

PATIENT
  Age: 66 Year
  Sex: Female

DRUGS (1)
  1. KEVZARA [Suspect]
     Active Substance: SARILUMAB
     Indication: Rheumatoid arthritis
     Dosage: 200 MG, QOW
     Route: 058
     Dates: start: 202111

REACTIONS (4)
  - Limb operation [Unknown]
  - Thrombosis [Unknown]
  - Pulmonary oedema [Unknown]
  - Bronchitis [Unknown]

NARRATIVE: CASE EVENT DATE: 20211101
